FAERS Safety Report 5973869-7 (Version None)
Quarter: 2008Q4

REPORT INFORMATION
  Report Type: 
  Country: None (occurrence: None)
  Receive Date: 20081201
  Receipt Date: 20080925
  Transmission Date: 20090506
  Serious: No
  Sender: FDA-Public Use
  Company Number: US-AMGEN-KDL308210

PATIENT
  Sex: Female
  Weight: 109.9 kg

DRUGS (3)
  1. ENBREL [Suspect]
     Indication: RHEUMATOID ARTHRITIS
     Route: 058
     Dates: start: 20080428
  2. PREDNISONE TAB [Concomitant]
  3. METHOTREXATE [Concomitant]
     Dates: start: 20080201

REACTIONS (1)
  - HYPERHIDROSIS [None]
